FAERS Safety Report 7049068-7 (Version None)
Quarter: 2010Q4

REPORT INFORMATION
  Report Type: 
  Country: None (occurrence: None)
  Receive Date: 20101007
  Receipt Date: 20100923
  Transmission Date: 20110411
  Serious: No
  Sender: FDA-Public Use
  Company Number: 019255

PATIENT
  Sex: Male
  Weight: 76.9301 kg

DRUGS (1)
  1. LACOSAMIDE [Suspect]
     Indication: EPILEPSY
     Dosage: (300 MG BID ORAL)
     Route: 048
     Dates: start: 20080925, end: 20100922

REACTIONS (1)
  - BRADYCARDIA [None]
